FAERS Safety Report 5210306-4 (Version None)
Quarter: 2007Q1

REPORT INFORMATION
  Report Type: 
  Country: None (occurrence: None)
  Receive Date: 20070111
  Receipt Date: 20061227
  Transmission Date: 20070707
  Serious: Yes (Life-Threatening)
  Sender: FDA-Public Use
  Company Number: 2006-150366-NL

PATIENT
  Age: 55 Year
  Sex: Male

DRUGS (9)
  1. VECURONIUM BROMIDE [Suspect]
     Indication: MUSCLE RELAXANT THERAPY
     Dosage: 9 MG ONCE INTRAVENOUS (NOS)
     Route: 042
     Dates: start: 20060531
  2. PROPOFOL [Suspect]
     Indication: INDUCTION OF ANAESTHESIA
     Dosage: 200 MG ONCE
     Dates: start: 20060531
  3. ATROPINE SULFATE [Suspect]
     Indication: NEUROMUSCULAR BLOCKADE REVERSAL
     Dosage: 1 MG ONCE
     Dates: start: 20060531
  4. NEOSTIGMINE METILSULFATE [Concomitant]
  5. LOXOPROFEN SODIUM [Concomitant]
  6. REBAMIPIDE [Concomitant]
  7. ROXITHROMYCIN [Concomitant]
  8. GLYCERYL TRINITRATE [Concomitant]
  9. TULOBUTEROL HYDROCHLORIDE [Concomitant]

REACTIONS (3)
  - LARYNGEAL OEDEMA [None]
  - LARYNGOSPASM [None]
  - NASOPHARYNGEAL DISORDER [None]
